FAERS Safety Report 4338025-7 (Version None)
Quarter: 2004Q2

REPORT INFORMATION
  Report Type: 
  Country: None (occurrence: None)
  Receive Date: 20040408
  Receipt Date: 20040329
  Transmission Date: 20050107
  Serious: Yes (Congenital Anomaly)
  Sender: FDA-Public Use
  Company Number: K200400465

PATIENT
  Sex: Female
  Weight: 2.5 kg

DRUGS (2)
  1. METHIMAZOLE [Suspect]
     Indication: BASEDOW'S DISEASE
     Dosage: 10 MG, QD, TRANSPLACENTAL
     Route: 064
  2. PROPYLTHIOCIL (PROPYLTHIOURACIL) 200MG [Suspect]
     Indication: BASEDOW'S DISEASE
     Dosage: 200 MG, TRANSPLACENTAL
     Route: 064

REACTIONS (10)
  - APGAR SCORE LOW [None]
  - APLASIA CUTIS CONGENITA [None]
  - CHOANAL ATRESIA [None]
  - HYPERTONIA [None]
  - MATERNAL DRUGS AFFECTING FOETUS [None]
  - NEONATAL DISORDER [None]
  - PILONIDAL CYST CONGENITAL [None]
  - PREMATURE BABY [None]
  - SKIN FISSURES [None]
  - UMBILICAL HERNIA [None]
